FAERS Safety Report 15301153 (Version 2)
Quarter: 2018Q3

REPORT INFORMATION
  Report Type: Spontaneous
  Country: BR (occurrence: BR)
  Receive Date: 20180821
  Receipt Date: 20180913
  Transmission Date: 20181010
  Serious: Yes (Hospitalization, Other)
  Sender: FDA-Public Use
  Company Number: BR-GLAXOSMITHKLINE-BR2016GSK067618

PATIENT
  Age: 24 Year
  Sex: Female
  Weight: 80 kg

DRUGS (2)
  1. BENLYSTA [Suspect]
     Active Substance: BELIMUMAB
     Indication: SYSTEMIC LUPUS ERYTHEMATOSUS
     Dosage: UNK
     Dates: start: 20160429
  2. CALCIUM [Suspect]
     Active Substance: CALCIUM
     Indication: PRODUCT USED FOR UNKNOWN INDICATION
     Dosage: UNK

REACTIONS (23)
  - Vomiting [Unknown]
  - Paraesthesia [Unknown]
  - Pain [Unknown]
  - Headache [Unknown]
  - Muscle atrophy [Unknown]
  - Inappropriate schedule of drug administration [Recovered/Resolved]
  - Rheumatic disorder [Unknown]
  - Nausea [Unknown]
  - Head discomfort [Unknown]
  - Muscular weakness [Unknown]
  - Arthralgia [Unknown]
  - Circumstance or information capable of leading to medication error [Recovered/Resolved]
  - Neoplasm skin [Unknown]
  - Joint swelling [Unknown]
  - Feeling hot [Unknown]
  - Adverse event [Unknown]
  - Drug ineffective [Unknown]
  - Systemic lupus erythematosus [Unknown]
  - Weight decreased [Unknown]
  - Musculoskeletal pain [Unknown]
  - Dermatitis allergic [Unknown]
  - Drug dose omission [Not Recovered/Not Resolved]
  - Drug effect decreased [Unknown]

NARRATIVE: CASE EVENT DATE: 20160728
